FAERS Safety Report 15611047 (Version 3)
Quarter: 2019Q2

REPORT INFORMATION
  Report Type: Spontaneous
  Country: US (occurrence: US)
  Receive Date: 20181113
  Receipt Date: 20190622
  Transmission Date: 20190711
  Serious: Yes (Other)
  Sender: FDA-Public Use
  Company Number: US-ROCHE-2025877

PATIENT
  Age: 69 Year
  Sex: Female
  Weight: 92.16 kg

DRUGS (5)
  1. HERCEPTIN [Suspect]
     Active Substance: TRASTUZUMAB
     Indication: HER-2 POSITIVE BREAST CANCER
     Route: 042
     Dates: start: 20171023
  2. DEXAMETHASONE. [Concomitant]
     Active Substance: DEXAMETHASONE
     Indication: PREMEDICATION
     Route: 042
     Dates: start: 20171113
  3. KADCYLA [Suspect]
     Active Substance: ADO-TRASTUZUMAB EMTANSINE
     Indication: HER-2 POSITIVE BREAST CANCER
     Route: 065
     Dates: start: 20190514
  4. HERCEPTIN [Suspect]
     Active Substance: TRASTUZUMAB
     Route: 042
     Dates: start: 2017, end: 20190415
  5. HERCEPTIN [Suspect]
     Active Substance: TRASTUZUMAB
     Route: 042
     Dates: start: 20171113, end: 20190415

REACTIONS (41)
  - Dysphonia [Recovered/Resolved]
  - Dyspepsia [Not Recovered/Not Resolved]
  - Eye disorder [Not Recovered/Not Resolved]
  - Gingival bleeding [Recovered/Resolved]
  - Erythema [Recovered/Resolved]
  - Tremor [Recovered/Resolved]
  - Hot flush [Unknown]
  - Cough [Recovered/Resolved]
  - Epistaxis [Recovered/Resolved]
  - Pallor [Recovered/Resolved]
  - Vitreous floaters [Not Recovered/Not Resolved]
  - Eye pain [Not Recovered/Not Resolved]
  - Abdominal tenderness [Not Recovered/Not Resolved]
  - Palpitations [Recovered/Resolved]
  - Bronchitis [Unknown]
  - Chills [Recovered/Resolved]
  - Body temperature increased [Recovered/Resolved]
  - Nasal congestion [Not Recovered/Not Resolved]
  - Swelling [Unknown]
  - Photopsia [Not Recovered/Not Resolved]
  - Paraesthesia [Unknown]
  - Abdominal pain upper [Unknown]
  - Nasopharyngitis [Unknown]
  - Headache [Not Recovered/Not Resolved]
  - Sneezing [Recovered/Resolved]
  - Ear pain [Not Recovered/Not Resolved]
  - Ocular hyperaemia [Not Recovered/Not Resolved]
  - Hepatic pain [Not Recovered/Not Resolved]
  - Diarrhoea [Recovered/Resolved]
  - Nausea [Not Recovered/Not Resolved]
  - Rhinorrhoea [Not Recovered/Not Resolved]
  - Nail disorder [Unknown]
  - Fatigue [Not Recovered/Not Resolved]
  - Insomnia [Not Recovered/Not Resolved]
  - Onychoclasis [Unknown]
  - Feeling abnormal [Recovered/Resolved]
  - Dry mouth [Recovered/Resolved]
  - Neuropathy peripheral [Not Recovered/Not Resolved]
  - Dysgeusia [Recovered/Resolved]
  - Muscular weakness [Not Recovered/Not Resolved]
  - Vision blurred [Not Recovered/Not Resolved]

NARRATIVE: CASE EVENT DATE: 2017
